FAERS Safety Report 20675481 (Version 1)
Quarter: 2022Q2

REPORT INFORMATION
  Report Type: Spontaneous
  Country: CN (occurrence: CN)
  Receive Date: 20220405
  Receipt Date: 20220405
  Transmission Date: 20220721
  Serious: Yes (Hospitalization)
  Sender: FDA-Public Use
  Company Number: CN-PFIZER INC-202200475180

PATIENT
  Age: 65 Year
  Sex: Female
  Weight: 61.2 kg

DRUGS (1)
  1. MEDROL [Suspect]
     Active Substance: METHYLPREDNISOLONE
     Indication: Antiinflammatory therapy
     Dosage: 2 TABLETS, 1X/DAY
     Route: 048
     Dates: start: 20211201, end: 20220115

REACTIONS (4)
  - Osteoporosis [Recovering/Resolving]
  - Oedema peripheral [Recovering/Resolving]
  - Swelling of eyelid [Recovering/Resolving]
  - Hypertension [Recovering/Resolving]

NARRATIVE: CASE EVENT DATE: 20220101
